FAERS Safety Report 7788631-2 (Version None)
Quarter: 2011Q3

REPORT INFORMATION
  Report Type: 
  Country: None (occurrence: None)
  Receive Date: 20110930
  Receipt Date: 20110927
  Transmission Date: 20111222
  Serious: Yes (Hospitalization)
  Sender: FDA-Public Use
  Company Number: FR-BRISTOL-MYERS SQUIBB COMPANY-14451793

PATIENT
  Age: 58 Year
  Sex: Female

DRUGS (7)
  1. KETOPROFEN [Concomitant]
  2. ORENCIA [Suspect]
     Indication: RHEUMATOID ARTHRITIS
     Dosage: STOPPED AFTER 5 INFUSIONS
     Route: 042
     Dates: start: 20080701, end: 20080901
  3. ZOLPIDEM [Concomitant]
  4. SPECIAFOLDINE [Concomitant]
  5. CALTRATE VITAMINE D3 [Concomitant]
     Dosage: 1DF=600 MG/400 UI TABLET
  6. METHOTREXATE [Concomitant]
  7. BONIVA [Concomitant]

REACTIONS (1)
  - PSORIASIS [None]
